FAERS Safety Report 9167045 (Version 1)
Quarter: 2013Q1

REPORT INFORMATION
  Report Type: Spontaneous
  Country: GB (occurrence: GB)
  Receive Date: 20130318
  Receipt Date: 20130318
  Transmission Date: 20140127
  Serious: Yes (Life-Threatening, Hospitalization, Other)
  Sender: FDA-Public Use
  Company Number: GB-ALVOGEN-2013AL000151

PATIENT
  Age: 66 Year
  Sex: Female

DRUGS (4)
  1. METFORMIN HYDROCHLORIDE [Suspect]
     Indication: TYPE 2 DIABETES MELLITUS
  2. RAMIPRIL [Suspect]
     Indication: HYPERTENSION
  3. BENDROFLUMETHIAZIDE [Concomitant]
     Indication: HYPERTENSION
  4. SIMVASTATIN [Concomitant]
     Indication: HYPERTENSION

REACTIONS (4)
  - Toxicity to various agents [Recovered/Resolved]
  - Drug interaction [Recovered/Resolved]
  - Lactic acidosis [Recovered/Resolved]
  - Cardiac arrest [Recovered/Resolved]
